FAERS Safety Report 10355905 (Version 2)
Quarter: 2014Q3

REPORT INFORMATION
  Report Type: Spontaneous
  Country: FR (occurrence: FR)
  Receive Date: 20140801
  Receipt Date: 20140829
  Transmission Date: 20150326
  Serious: Yes (Other)
  Sender: FDA-Public Use
  Company Number: FR-ROCHE-1443900

PATIENT
  Age: 68 Year
  Sex: Male

DRUGS (4)
  1. FLUOROURACIL. [Suspect]
     Active Substance: FLUOROURACIL
     Indication: GASTROINTESTINAL CARCINOMA
     Dosage: DISCONTINUED IN NOV, DEC-2013 AND JAN-2014
     Route: 041
     Dates: start: 201303
  2. SOLU-MEDROL [Suspect]
     Active Substance: METHYLPREDNISOLONE SODIUM SUCCINATE
     Indication: GASTROINTESTINAL CARCINOMA
     Dosage: DISCONTINUED IN NOV, DEC-2013 AND JAN-2014
     Route: 042
     Dates: start: 201303
  3. CAMPTO [Suspect]
     Active Substance: IRINOTECAN
     Indication: GASTROINTESTINAL CARCINOMA
     Dosage: DISCONTINUED IN NOV, DEC-2013 AND JAN-2014
     Route: 041
     Dates: start: 201303
  4. AVASTIN [Suspect]
     Active Substance: BEVACIZUMAB
     Indication: GASTROINTESTINAL CARCINOMA
     Dosage: DISCONTINUED IN NOV, DEC-2013 AND JAN-2014
     Route: 041
     Dates: start: 201303

REACTIONS (1)
  - Cataract [Unknown]

NARRATIVE: CASE EVENT DATE: 2014
